FAERS Safety Report 18325306 (Version 1)
Quarter: 2020Q3

REPORT INFORMATION
  Report Type: Spontaneous
  Country: BR (occurrence: BR)
  Receive Date: 20200929
  Receipt Date: 20200929
  Transmission Date: 20201103
  Serious: Yes (Hospitalization, Other)
  Sender: FDA-Public Use
  Company Number: BR-VALIDUS PHARMACEUTICALS LLC-BR-2020VAL000788

PATIENT

DRUGS (2)
  1. FUROSEMIDE. [Suspect]
     Active Substance: FUROSEMIDE
     Indication: OEDEMA PERIPHERAL
     Dosage: 40 MG, QD
     Route: 042
  2. METHYLPREDNISOLONE. [Concomitant]
     Active Substance: METHYLPREDNISOLONE
     Indication: PRODUCT USED FOR UNKNOWN INDICATION
     Dosage: UNK

REACTIONS (9)
  - Hypervolaemia [Unknown]
  - Metabolic alkalosis [Unknown]
  - Polyuria [Recovering/Resolving]
  - Hypertension [Unknown]
  - Fluid balance positive [Unknown]
  - Renal impairment [Recovering/Resolving]
  - Hypernatraemia [Recovering/Resolving]
  - Hypokalaemia [Unknown]
  - Blood urea increased [Recovering/Resolving]
